FAERS Safety Report 5830801-4 (Version None)
Quarter: 2008Q3

REPORT INFORMATION
  Report Type: 
  Country: None (occurrence: None)
  Receive Date: 20080801
  Receipt Date: 20071203
  Transmission Date: 20090109
  Serious: No
  Sender: FDA-Public Use
  Company Number: US-BRISTOL-MYERS SQUIBB COMPANY-14001184

PATIENT
  Age: 75 Year
  Sex: Female
  Weight: 104 kg

DRUGS (8)
  1. COUMADIN [Suspect]
     Indication: THROMBOSIS
     Dosage: 1 DOSAGE FORM: 7.5 MG 4 DAYS PER WEEK AND 5 MG 3 DAYS AWEEK.
     Dates: start: 20010101
  2. LIPITOR [Concomitant]
  3. VITAMIN B-12 [Concomitant]
  4. CENTRUM SILVER [Concomitant]
  5. SYNTHROID [Concomitant]
  6. DIOVAN [Concomitant]
  7. TOPROL-XL [Concomitant]
  8. TOPROL-XL [Concomitant]

REACTIONS (3)
  - ABDOMINAL PAIN UPPER [None]
  - ALOPECIA [None]
  - OESOPHAGEAL PAIN [None]
